FAERS Safety Report 5337135-5 (Version None)
Quarter: 2007Q2

REPORT INFORMATION
  Report Type: 
  Country: None (occurrence: None)
  Receive Date: 20070529
  Receipt Date: 20070521
  Transmission Date: 20071010
  Serious: Yes (Other)
  Sender: FDA-Public Use
  Company Number: NL-ASTRAZENECA-2007AC00350

PATIENT
  Sex: Male
  Weight: 60 kg

DRUGS (3)
  1. CRESTOR [Suspect]
     Route: 048
  2. ASCAL [Concomitant]
     Indication: THROMBOSIS PROPHYLAXIS
  3. SYMBICORT [Concomitant]
     Indication: ASTHMA
     Route: 055

REACTIONS (1)
  - BRADYCARDIA [None]
